FAERS Safety Report 11303497 (Version 1)
Quarter: 2015Q3

REPORT INFORMATION
  Report Type: Spontaneous
  Country: US (occurrence: US)
  Receive Date: 20150723
  Receipt Date: 20150723
  Transmission Date: 20151125
  Serious: No
  Sender: FDA-Public Use
  Company Number: US-JNJFOC-20141209031

PATIENT
  Age: 35 Year
  Sex: Male
  Weight: 90.72 kg

DRUGS (2)
  1. ZYRTEC [Suspect]
     Active Substance: CETIRIZINE HYDROCHLORIDE
     Indication: MULTIPLE ALLERGIES
     Route: 048
     Dates: start: 20141202, end: 20141204
  2. ZYRTEC [Suspect]
     Active Substance: CETIRIZINE HYDROCHLORIDE
     Route: 048

REACTIONS (2)
  - Headache [Recovered/Resolved]
  - Nasal dryness [Recovered/Resolved]

NARRATIVE: CASE EVENT DATE: 20141202
